FAERS Safety Report 21300835 (Version 1)
Quarter: 2022Q3

REPORT INFORMATION
  Report Type: Spontaneous
  Country: NL (occurrence: NL)
  Receive Date: 20220907
  Receipt Date: 20220907
  Transmission Date: 20221027
  Serious: Yes (Hospitalization)
  Sender: FDA-Public Use
  Company Number: None

PATIENT
  Sex: Male
  Weight: 65 kg

DRUGS (2)
  1. CARBAMAZEPINE [Suspect]
     Active Substance: CARBAMAZEPINE
     Indication: Epilepsy
     Dosage: 2DD 1 TABLET, CARBAMAZEPINE / BRAND NAME NOT SPECIFIED, FREQUENCY TIME : 12 HRS, UNIT DOSE: 1 DF, TH
     Dates: start: 20190101
  2. CLOPIDOGREL [Concomitant]
     Active Substance: CLOPIDOGREL BISULFATE
     Indication: Product used for unknown indication
     Dosage: CLOPIDOGREL TABLET   75MG / BRAND NAME NOT SPECIFIED, THERAPY START DATE AND END DATE : ASKU

REACTIONS (3)
  - Vertigo [Recovering/Resolving]
  - Ataxia [Recovering/Resolving]
  - Diplopia [Recovering/Resolving]
